FAERS Safety Report 21004560 (Version 1)
Quarter: 2022Q2

REPORT INFORMATION
  Report Type: Spontaneous
  Country: IN (occurrence: IN)
  Receive Date: 20220624
  Receipt Date: 20220624
  Transmission Date: 20220721
  Serious: Yes (Other)
  Sender: FDA-Public Use
  Company Number: IN-PFIZER INC-2021187369

PATIENT
  Age: 75 Year
  Sex: Female
  Weight: 48.3 kg

DRUGS (6)
  1. PALBOCICLIB [Suspect]
     Active Substance: PALBOCICLIB
     Indication: Breast cancer metastatic
     Dosage: 125 MG, 1X/DAY
     Route: 048
     Dates: start: 20201203
  2. PALBOCICLIB [Suspect]
     Active Substance: PALBOCICLIB
     Dosage: 100 MG, ONCE A DAY
     Route: 048
     Dates: start: 20210528
  3. FULVESTRANT [Concomitant]
     Active Substance: FULVESTRANT
     Dosage: 500 MG (ON DAY 1.14, 28 AND THEN EVERY 28 DAYS)
     Route: 030
     Dates: start: 20201201
  4. ZOLEDRONIC ACID [Concomitant]
     Active Substance: ZOLEDRONIC ACID
     Dosage: 4 MG, MONTHLY
     Route: 042
  5. ZOLEDRONIC ACID [Concomitant]
     Active Substance: ZOLEDRONIC ACID
     Dosage: 4 MG IN 50ML NS IV OVER 15-20 MIN
     Dates: start: 20220214
  6. CALCIUM CARBONATE [Concomitant]
     Active Substance: CALCIUM CARBONATE
     Dosage: 1 G, DAILY

REACTIONS (10)
  - Neutropenia [Unknown]
  - Brain neoplasm [Unknown]
  - Bone pain [Unknown]
  - Weight increased [Unknown]
  - Furuncle [Unknown]
  - Rash [Unknown]
  - Herpes zoster [Unknown]
  - Weight decreased [Unknown]
  - Dysphagia [Unknown]
  - Gastric mucosal lesion [Unknown]
